FAERS Safety Report 4835920-7 (Version None)
Quarter: 2005Q4

REPORT INFORMATION
  Report Type: 
  Country: None (occurrence: None)
  Receive Date: 20051118
  Receipt Date: 20051107
  Transmission Date: 20060501
  Serious: Yes (Death)
  Sender: FDA-Public Use
  Company Number: 2005151678

PATIENT
  Sex: Male

DRUGS (2)
  1. LIPITOR [Suspect]
     Indication: ILL-DEFINED DISORDER
     Dosage: (1 IN 1 D), ORAL
     Route: 048
     Dates: end: 20050101
  2. ARICEPT [Suspect]
     Indication: ILL-DEFINED DISORDER
     Dosage: (1 IN 1 D), ORAL
     Route: 048

REACTIONS (2)
  - MALIGNANT NEOPLASM PROGRESSION [None]
  - METASTASES TO BONE [None]
